FAERS Safety Report 9967668 (Version 2)
Quarter: 2014Q1

REPORT INFORMATION
  Report Type: Report from Study
  Country: PR (occurrence: PR)
  Receive Date: 20140305
  Receipt Date: 20140305
  Transmission Date: 20141002
  Serious: No
  Sender: FDA-Public Use
  Company Number: PR-ABBVIE-12P-131-0932054-00

PATIENT
  Age: 42 Year
  Sex: Female
  Weight: 61.29 kg

DRUGS (6)
  1. HUMIRA [Suspect]
     Indication: RHEUMATOID ARTHRITIS
     Dosage: EVERY OTHER MONDAY
     Dates: start: 201202
  2. LIPITOR [Concomitant]
     Indication: PROPHYLAXIS
     Route: 048
  3. HEMATRON [Concomitant]
     Indication: SUPPLEMENTATION THERAPY
     Route: 048
  4. METHOTREXATE [Concomitant]
     Indication: RHEUMATOID ARTHRITIS
     Route: 050
  5. HUMALOG [Concomitant]
     Indication: DIABETES MELLITUS
     Route: 058
  6. LANTUS [Concomitant]
     Indication: DIABETES MELLITUS
     Dosage: AT NIGHT
     Route: 058

REACTIONS (1)
  - Fungal infection [Not Recovered/Not Resolved]
